FAERS Safety Report 6406144-7 (Version None)
Quarter: 2009Q4

REPORT INFORMATION
  Report Type: 
  Country: None (occurrence: None)
  Receive Date: 20091019
  Receipt Date: 20091014
  Transmission Date: 20100525
  Serious: Yes (Death, Hospitalization)
  Sender: FDA-Public Use
  Company Number: US-AMGEN-US368131

PATIENT
  Sex: Female
  Weight: 65.4 kg

DRUGS (10)
  1. NPLATE [Suspect]
     Indication: IDIOPATHIC THROMBOCYTOPENIC PURPURA
     Route: 058
     Dates: start: 20090915, end: 20090922
  2. WARFARIN SODIUM [Concomitant]
     Dates: start: 20090801
  3. OMEPRAZOLE [Concomitant]
  4. DEXAMETHASONE [Concomitant]
  5. LASIX [Concomitant]
  6. LORAZEPAM [Concomitant]
  7. POTASSIUM CHLORIDE [Concomitant]
  8. VITAMIN B-12 [Concomitant]
  9. MULTI-VITAMINS [Concomitant]
  10. LEVOTHYROXINE SODIUM [Concomitant]

REACTIONS (3)
  - ASTHENIA [None]
  - GLIOBLASTOMA MULTIFORME [None]
  - PANCYTOPENIA [None]
